FAERS Safety Report 23868303 (Version 1)
Quarter: 2024Q2

REPORT INFORMATION
  Report Type: Other
  Country: CN (occurrence: CN)
  Receive Date: 20240517
  Receipt Date: 20240517
  Transmission Date: 20240716
  Serious: Yes (Other)
  Sender: FDA-Public Use
  Company Number: CN-TETRAPHASE PHARMACEUTICALS, INC-2024-INNO-CN000029

PATIENT
  Age: 65 Year
  Sex: Male
  Weight: 50 kg

DRUGS (1)
  1. XERAVA [Suspect]
     Active Substance: ERAVACYCLINE DIHYDROCHLORIDE
     Indication: Anti-infective therapy
     Dosage: 50 MG, ONCE EVERY 12 HOURS (Q12H) POWDER INJECTION
     Route: 041
     Dates: start: 20240322, end: 20240328

REACTIONS (1)
  - Platelet count decreased [Recovering/Resolving]

NARRATIVE: CASE EVENT DATE: 20240327
